FAERS Safety Report 21102712 (Version 2)
Quarter: 2023Q1

REPORT INFORMATION
  Report Type: Spontaneous
  Country: US (occurrence: US)
  Receive Date: 20220720
  Receipt Date: 20230331
  Transmission Date: 20230418
  Serious: Yes (Other)
  Sender: FDA-Public Use
  Company Number: US-JNJFOC-20220724130

PATIENT
  Age: 77 Year
  Sex: Female

DRUGS (19)
  1. ELMIRON [Suspect]
     Active Substance: PENTOSAN POLYSULFATE SODIUM
     Indication: Cystitis interstitial
     Route: 048
     Dates: start: 20130101, end: 20210401
  2. ELMIRON [Suspect]
     Active Substance: PENTOSAN POLYSULFATE SODIUM
     Route: 048
     Dates: end: 202204
  3. ACETAMINOPHEN\HYDROCODONE [Concomitant]
     Active Substance: ACETAMINOPHEN\HYDROCODONE
     Indication: Analgesic therapy
     Dates: start: 20140802
  4. LIOTHYRONINE [Concomitant]
     Active Substance: LIOTHYRONINE
     Indication: Hypothyroidism
     Dates: start: 20140811
  5. BUPROPION [Concomitant]
     Active Substance: BUPROPION
     Indication: Depression
     Dates: start: 20140811
  6. HYDROXYZINE HYDROCHLORIDE [Concomitant]
     Active Substance: HYDROXYZINE HYDROCHLORIDE
     Indication: Affective disorder
     Dates: start: 20141027, end: 20181119
  7. TROSPIUM [Concomitant]
     Active Substance: TROSPIUM
     Indication: Hypertonic bladder
     Dates: start: 20140820
  8. METOPROLOL [Concomitant]
     Active Substance: METOPROLOL
     Indication: Chest pain
  9. SYNTHROID [Concomitant]
     Active Substance: LEVOTHYROXINE SODIUM
     Indication: Hypothyroidism
     Dates: start: 20141027, end: 20180420
  10. AMOXICILLIN [Concomitant]
     Active Substance: AMOXICILLIN
     Indication: Bacterial infection
     Dates: start: 20141205, end: 20200527
  11. CIPROFLOXACIN [Concomitant]
     Active Substance: CIPROFLOXACIN
     Indication: Bacterial infection
     Dates: start: 20150119, end: 20190926
  12. METFORMIN [Concomitant]
     Active Substance: METFORMIN HYDROCHLORIDE
     Indication: Blood pressure measurement
     Dates: start: 20150327, end: 20180525
  13. GABAPENTIN [Concomitant]
     Active Substance: GABAPENTIN
     Indication: Seizure
     Dates: start: 20150424
  14. AMIODARONE [Concomitant]
     Active Substance: AMIODARONE
     Indication: Heart rate irregular
     Dates: start: 20160224
  15. ELIQUIS [Concomitant]
     Active Substance: APIXABAN
     Indication: Thrombosis
     Dates: start: 20160316
  16. ISOSORBIDE MONONITRATE [Concomitant]
     Active Substance: ISOSORBIDE MONONITRATE
     Indication: Chest pain
     Dates: start: 20160829
  17. PHENAZOPYRIDINE [Concomitant]
     Active Substance: PHENAZOPYRIDINE
     Indication: Urinary tract disorder
     Dates: start: 20160926, end: 20201120
  18. CEPHALEXIN [Concomitant]
     Active Substance: CEPHALEXIN
     Indication: Bacterial infection
     Dates: start: 20161223, end: 20200601
  19. PANTOPRAZOLE [Concomitant]
     Active Substance: PANTOPRAZOLE
     Indication: Gastrooesophageal reflux disease
     Dates: start: 20150119

REACTIONS (3)
  - Dry age-related macular degeneration [Not Recovered/Not Resolved]
  - Maculopathy [Unknown]
  - Off label use [Unknown]

NARRATIVE: CASE EVENT DATE: 20170101
